FAERS Safety Report 24424727 (Version 8)
Quarter: 2025Q3

REPORT INFORMATION
  Report Type: Spontaneous
  Country: US (occurrence: US)
  Receive Date: 20241010
  Receipt Date: 20250909
  Transmission Date: 20251021
  Serious: Yes (Other)
  Sender: PFIZER
  Company Number: US-PFIZER INC-202400272797

PATIENT
  Age: 31 Year
  Sex: Male

DRUGS (1)
  1. VELSIPITY [Suspect]
     Active Substance: ETRASIMOD ARGININE
     Dosage: 2 MG, 1X/DAY
     Route: 048

REACTIONS (6)
  - Colitis [Unknown]
  - Crohn^s disease [Unknown]
  - Condition aggravated [Not Recovered/Not Resolved]
  - Abdominal discomfort [Unknown]
  - Flatulence [Unknown]
  - Irritable bowel syndrome [Unknown]
